FAERS Safety Report 23601105 (Version 3)
Quarter: 2024Q1

REPORT INFORMATION
  Report Type: Spontaneous
  Country: BR (occurrence: BR)
  Receive Date: 20240306
  Receipt Date: 20240322
  Transmission Date: 20240410
  Serious: Yes (Other)
  Sender: FDA-Public Use
  Company Number: BR-PFIZER INC-PV202400023430

PATIENT
  Age: 11 Year
  Sex: Female
  Weight: 26 kg

DRUGS (3)
  1. GENOTROPIN [Suspect]
     Active Substance: SOMATROPIN
     Indication: Short stature
     Dosage: 0.8 MG, BEFORE SLEEP
     Route: 058
     Dates: start: 202305, end: 20240216
  2. GENOTROPIN [Suspect]
     Active Substance: SOMATROPIN
     Dosage: 2.4 IU
     Route: 058
     Dates: start: 202304, end: 202401
  3. COBAMAMIDE\CYPROHEPTADINE HYDROCHLORIDE [Concomitant]
     Active Substance: COBAMAMIDE\CYPROHEPTADINE HYDROCHLORIDE
     Dosage: UNK
     Dates: start: 202304, end: 202305

REACTIONS (2)
  - Scoliosis [Not Recovered/Not Resolved]
  - Body height decreased [Unknown]

NARRATIVE: CASE EVENT DATE: 20240201
